FAERS Safety Report 15847098 (Version 1)
Quarter: 2019Q1

REPORT INFORMATION
  Report Type: Report from Study
  Country: FR (occurrence: FR)
  Receive Date: 20190121
  Receipt Date: 20190121
  Transmission Date: 20190417
  Serious: Yes (Other)
  Sender: FDA-Public Use
  Company Number: FR-ROCHE-2245284

PATIENT

DRUGS (1)
  1. VEMURAFENIB. [Suspect]
     Active Substance: VEMURAFENIB
     Indication: BRAF V600E MUTATION POSITIVE
     Route: 065

REACTIONS (2)
  - Photosensitivity reaction [Unknown]
  - Angioedema [Unknown]
